FAERS Safety Report 21452691 (Version 2)
Quarter: 2022Q4

REPORT INFORMATION
  Report Type: Spontaneous
  Country: DE (occurrence: None)
  Receive Date: 20221013
  Receipt Date: 20221111
  Transmission Date: 20230113
  Serious: No
  Sender: FDA-Public Use
  Company Number: DE-ROCHE-3197184

PATIENT

DRUGS (1)
  1. OCREVUS [Suspect]
     Active Substance: OCRELIZUMAB
     Indication: Multiple sclerosis
     Route: 042
     Dates: start: 2020

REACTIONS (3)
  - COVID-19 [Recovered/Resolved]
  - SARS-CoV-2 antibody test negative [Unknown]
  - Bladder disorder [Recovered/Resolved]
